FAERS Safety Report 9051152 (Version 1)
Quarter: 2013Q1

REPORT INFORMATION
  Report Type: Spontaneous
  Country: US (occurrence: US)
  Receive Date: 20130206
  Receipt Date: 20130206
  Transmission Date: 20140127
  Serious: No
  Sender: FDA-Public Use
  Company Number: US-PFIZER INC-2013044274

PATIENT
  Sex: Female

DRUGS (4)
  1. FELDENE [Suspect]
  2. DAYPRO [Suspect]
  3. TOLECTIN [Suspect]
  4. NAPROXEN [Suspect]

REACTIONS (1)
  - Drug hypersensitivity [Unknown]
